FAERS Safety Report 15991276 (Version 5)
Quarter: 2022Q2

REPORT INFORMATION
  Report Type: Spontaneous
  Country: AT (occurrence: AT)
  Receive Date: 20190221
  Receipt Date: 20220520
  Transmission Date: 20220721
  Serious: Yes (Death, Hospitalization, Other)
  Sender: FDA-Public Use
  Company Number: AT-BOEHRINGERINGELHEIM-2018-BI-031409

PATIENT
  Age: 80 Year
  Sex: Female

DRUGS (69)
  1. PRAMIPEXOLE [Interacting]
     Active Substance: PRAMIPEXOLE
     Indication: Restless legs syndrome
     Dosage: 2.1 MILLIGRAM, QD
     Route: 065
  2. OMEPRAZOLE [Interacting]
     Active Substance: OMEPRAZOLE
     Indication: Gastritis
     Dosage: 80 MILLIGRAM, QD
     Route: 065
  3. DULOXETINE [Interacting]
     Active Substance: DULOXETINE
     Indication: Pain
     Dosage: UNK
     Route: 065
  4. DULOXETINE [Interacting]
     Active Substance: DULOXETINE
     Dosage: 120 MILLIGRAM, QD
     Route: 065
  5. DULOXETINE [Interacting]
     Active Substance: DULOXETINE
     Dosage: 60 MILLIGRAM, QD
     Route: 065
  6. DULOXETINE [Interacting]
     Active Substance: DULOXETINE
     Dosage: 60 MILLIGRAM, BID (START DATE: 23-NOV-2015)
     Route: 065
  7. DULOXETINE [Interacting]
     Active Substance: DULOXETINE
     Dosage: 600 MILLIGRAM, QD
     Route: 065
  8. TRAMADOL [Interacting]
     Active Substance: TRAMADOL
     Indication: Pain
     Dosage: 200 MILLIGRAM, QD
     Route: 065
  9. CLOPIDOGREL [Interacting]
     Active Substance: CLOPIDOGREL BISULFATE
     Indication: Coronary artery disease
     Dosage: 75 MILLIGRAM, QD
     Route: 065
  10. BISOPROLOL [Interacting]
     Active Substance: BISOPROLOL
     Indication: Coronary artery disease
     Dosage: 5 MILLIGRAM, QD,IN TWO DIVIDED DOSES, PNE IN THE MORNING AND ONE AT NIGHT
     Route: 065
  11. BISOPROLOL [Interacting]
     Active Substance: BISOPROLOL
     Dosage: 2.5 MG, (IN TWO DIVIDED DOSES, PNE IN THE MORNING AND
  12. BISOPROLOL [Interacting]
     Active Substance: BISOPROLOL
     Dosage: 3 MILLIGRAM, QD (3 MG, DRUG INTERVAL DOSAGE UNIT NUMBER 1 DAY)
     Route: 065
  13. GABAPENTIN [Interacting]
     Active Substance: GABAPENTIN
     Indication: Pain
     Dosage: 1200 MILLIGRAM, QD
     Route: 065
  14. GABAPENTIN [Interacting]
     Active Substance: GABAPENTIN
     Dosage: 600 MILLIGRAM, QD
     Route: 065
  15. ALPRAZOLAM [Interacting]
     Active Substance: ALPRAZOLAM
     Indication: Fear
     Dosage: UNK
     Route: 065
  16. ALPRAZOLAM [Interacting]
     Active Substance: ALPRAZOLAM
     Dosage: 0.5 MILLIGRAM, QD (IN 2 DIVIDED DOSES,1 IN MORNING AND 1 IN NIGHT)
     Route: 065
  17. PREDNISONE [Interacting]
     Active Substance: PREDNISONE
     Indication: Chronic obstructive pulmonary disease
     Dosage: 25 MILLIGRAM, QD (UNTIL FOLLOW-UP)
     Route: 065
  18. PREDNISONE [Interacting]
     Active Substance: PREDNISONE
     Dosage: 5 MILLIGRAM, QD
     Route: 065
  19. RISPERIDONE [Interacting]
     Active Substance: RISPERIDONE
     Indication: Product used for unknown indication
     Dosage: 1 MILLIGRAM NOCTE (HALF DOSE AT NIGHT)
     Route: 065
  20. ACETYLCYSTEINE [Interacting]
     Active Substance: ACETYLCYSTEINE
     Indication: Chronic obstructive pulmonary disease
     Dosage: 600 MILLIGRAM, QD
     Route: 065
  21. LEVOTHYROXINE [Interacting]
     Active Substance: LEVOTHYROXINE
     Indication: Hyperthyroidism
     Dosage: 125 MILLIGRAM, QD (HALF DOSE ONCE IN THE MORNING)
     Route: 065
  22. LEVOTHYROXINE [Interacting]
     Active Substance: LEVOTHYROXINE
     Dosage: 75 MICROGRAM, QD
     Route: 065
  23. DICLOFENAC [Interacting]
     Active Substance: DICLOFENAC
     Indication: Pain
     Dosage: UNK, PRN,MAX 2X1 AS NEEDED IN CASE OF PAIN
     Route: 065
  24. DICLOFENAC [Interacting]
     Active Substance: DICLOFENAC
     Dosage: 75 MG, MAX 2*1 AS NEEDED IN CASE OF PAIN
     Route: 065
  25. DICLOFENAC [Interacting]
     Active Substance: DICLOFENAC
     Dosage: 300 MILLIGRAM, QD (150 MG, DRUG INTERVAL DOSAGE UNIT NUMBER 1 DAY)
     Route: 065
  26. THEOPHYLLINE [Interacting]
     Active Substance: THEOPHYLLINE
     Indication: Chronic obstructive pulmonary disease
     Dosage: 400 MILLIGRAM, QD
     Route: 065
  27. THEOPHYLLINE [Interacting]
     Active Substance: THEOPHYLLINE
     Dosage: 200 MILLIGRAM, QD
     Route: 065
  28. ACETAZOLAMIDE [Interacting]
     Active Substance: ACETAZOLAMIDE
     Indication: Hypercapnia
     Dosage: 50 MILLIGRAM, QD (ONCE IN THE MORNING)
     Route: 065
  29. ACETAZOLAMIDE [Interacting]
     Active Substance: ACETAZOLAMIDE
     Dosage: 250 MILLIGRAM, QW (START DATE: 23-NOV-2015)
     Route: 065
  30. ACETAZOLAMIDE [Interacting]
     Active Substance: ACETAZOLAMIDE
     Dosage: 36 MILLIGRAM, QD (DRUG INTERVAL DOSAGE UNIT NUMBER 1 DAY)
     Route: 065
  31. HYDROMORPHONE [Interacting]
     Active Substance: HYDROMORPHONE
     Indication: Pain
     Dosage: 4 MILLIGRAM, QD (ONCE IN THE MORNING))
     Route: 065
  32. SERTRALINE [Interacting]
     Active Substance: SERTRALINE HYDROCHLORIDE
     Indication: Depression
     Dosage: 50 MILLIGRAM, QD (ONCE MORNING)
     Route: 065
  33. FLUTICASONE [Interacting]
     Active Substance: FLUTICASONE
     Indication: Chronic obstructive pulmonary disease
     Dosage: 920 MICROGRAM, QD
     Route: 055
  34. FLUTICASONE [Interacting]
     Active Substance: FLUTICASONE
     Dosage: 460 MICROGRAM, QD
     Route: 055
  35. FLUTICASONE [Interacting]
     Active Substance: FLUTICASONE
     Dosage: 460 UG, BID, PUFFS (START DATE: 23-NOV-2015)
     Route: 055
  36. ASPIRIN [Interacting]
     Active Substance: ASPIRIN
     Indication: Coronary artery disease
     Dosage: 100 MILLIGRAM, QD
     Route: 065
  37. ASPIRIN [Interacting]
     Active Substance: ASPIRIN
     Indication: Pain
  38. BENSERAZIDE [Suspect]
     Active Substance: BENSERAZIDE
     Indication: Restless legs syndrome
     Dosage: 25 MILLIGRAM, QD
     Route: 065
  39. OXYGEN [Interacting]
     Active Substance: OXYGEN
     Indication: Chronic obstructive pulmonary disease
     Dosage: UNK
     Route: 065
  40. OXYGEN [Interacting]
     Active Substance: OXYGEN
     Indication: Hypoxia
     Dosage: 2 LITER, UNK
     Route: 065
  41. OXYGEN [Interacting]
     Active Substance: OXYGEN
     Indication: Peripheral venous disease
  42. METAMIZOLE SODIUM [Suspect]
     Active Substance: METAMIZOLE SODIUM
     Indication: Product used for unknown indication
     Dosage: 50 MILLIGRAM, QD
     Route: 042
  43. METAMIZOLE SODIUM [Suspect]
     Active Substance: METAMIZOLE SODIUM
     Dosage: 25 MILLIGRAM, QD
     Route: 042
  44. METAMIZOLE SODIUM [Suspect]
     Active Substance: METAMIZOLE SODIUM
     Dosage: UNK
     Route: 065
  45. ERGOCALCIFEROL [Interacting]
     Active Substance: ERGOCALCIFEROL
     Indication: Vitamin D deficiency
     Dosage: 16000 INTERNATIONAL UNIT, QW,WEEKLY
     Route: 065
  46. DIOSMIN [Interacting]
     Active Substance: DIOSMIN
     Indication: Peripheral venous disease
     Dosage: 450 MILLIGRAM, QD,AT PATIENTS INSISTENCE , (450 MG/50 MG),QD (1-0-0)
     Route: 065
  47. SALMETEROL [Interacting]
     Active Substance: SALMETEROL
     Indication: Chronic obstructive pulmonary disease
     Dosage: 4 DOSAGE FORM, QD,PUFFS
     Route: 055
  48. SALMETEROL [Interacting]
     Active Substance: SALMETEROL
     Dosage: 2 DOSAGE FORM, QD PUFFS
     Route: 055
  49. SALMETEROL [Interacting]
     Active Substance: SALMETEROL
     Dosage: 47 UG, PUFFS (2 DOSAGE FORMS,2-0-2)
     Route: 055
  50. LEVODOPA [Interacting]
     Active Substance: LEVODOPA
     Indication: Restless legs syndrome
     Dosage: 100 MILLIGRAM, QD
     Route: 065
  51. FENOTEROL [Suspect]
     Active Substance: FENOTEROL
     Indication: Chronic obstructive pulmonary disease
     Dosage: UNK, PRN, MAX 4X2 PUFFS AS NEEDED IN CASE OF DYSPNOEA
     Route: 055
  52. FENOTEROL [Suspect]
     Active Substance: FENOTEROL
     Dosage: 0.05 MG, MAX 4*2 PUFFS AS NEEDED IN CASE OF DYSPNOEA
     Route: 055
  53. SPIRIVA [Interacting]
     Active Substance: TIOTROPIUM BROMIDE MONOHYDRATE
     Indication: Chronic obstructive pulmonary disease
     Dosage: 18 MICROGRAM, QD,PUFF (1 DOSAGE, START DATE: 23-NOV-2015)
     Route: 055
  54. METHYLPREDNISOLONE [Suspect]
     Active Substance: METHYLPREDNISOLONE
     Indication: Product used for unknown indication
     Dosage: 64 MILLIGRAM, QD
     Route: 042
  55. ATORVASTATIN [Interacting]
     Active Substance: ATORVASTATIN
     Indication: Hypercholesterolaemia
     Dosage: 40 MILLIGRAM, QD (SUPERFLUOUS IN HINDSIGHT)
     Route: 065
  56. IBANDRONIC ACID [Interacting]
     Active Substance: IBANDRONIC ACID
     Indication: Osteoporosis
     Dosage: 3 MILLIGRAM, Q3MONTHS,EVERY 3 MONTHS
     Route: 065
  57. IBANDRONIC ACID [Interacting]
     Active Substance: IBANDRONIC ACID
     Indication: Peripheral venous disease
  58. ALGELDRATE [Concomitant]
     Active Substance: ALGELDRATE
     Indication: Gastrooesophageal reflux disease
     Dosage: UNK, PRN,AS NEEDED, MAX 2X1
     Route: 065
  59. ALGELDRATE [Concomitant]
     Active Substance: ALGELDRATE
     Dosage: 340 MG, AS NEEDED, MAX 2*1 (AS REQUIRED)
     Route: 065
  60. BENSERAZIDE [Concomitant]
     Active Substance: BENSERAZIDE
     Indication: Hypothyroidism
     Dosage: UNK
     Route: 065
  61. BENSERAZIDE [Concomitant]
     Active Substance: BENSERAZIDE
     Indication: Restless legs syndrome
  62. DIPHENHYDRAMINE [Concomitant]
     Active Substance: DIPHENHYDRAMINE
     Indication: Product used for unknown indication
     Dosage: UNK
     Route: 065
  63. MORPHINE HYDROCHLORIDE [Concomitant]
     Active Substance: MORPHINE HYDROCHLORIDE
     Indication: Product used for unknown indication
     Dosage: UNK
     Route: 065
  64. FUROSEMIDE [Concomitant]
     Active Substance: FUROSEMIDE
     Indication: Product used for unknown indication
     Dosage: UNK
     Route: 065
  65. FUROSEMIDE [Concomitant]
     Active Substance: FUROSEMIDE
     Dosage: 40 MILLIGRAM
     Route: 065
  66. IPRATROPIUM [Concomitant]
     Active Substance: IPRATROPIUM
     Indication: Chronic obstructive pulmonary disease
     Dosage: UNK
     Route: 065
  67. IPRATROPIUM [Concomitant]
     Active Substance: IPRATROPIUM
     Dosage: 0.02 MG, MAX 4X2 PUFFS AS NEEDED IN CASE OF DYSPNOEA
     Route: 065
  68. HESPERIDIN [Concomitant]
     Active Substance: HESPERIDIN
     Indication: Peripheral venous disease
     Dosage: 50 MILLIGRAM, QD,AT PATIENTS INSISTENCE
     Route: 065
  69. PIPERACILLIN SODIUM\TAZOBACTAM SODIUM [Concomitant]
     Active Substance: PIPERACILLIN SODIUM\TAZOBACTAM SODIUM
     Indication: Product used for unknown indication
     Dosage: UNK
     Route: 065

REACTIONS (17)
  - Death [Fatal]
  - Chronic obstructive pulmonary disease [Fatal]
  - Clostridium difficile colitis [Fatal]
  - Drug interaction [Fatal]
  - Erysipelas [Fatal]
  - Acute respiratory failure [Fatal]
  - Lung disorder [Fatal]
  - Hypercapnia [Fatal]
  - Acute myocardial infarction [Fatal]
  - Urinary tract infection [Fatal]
  - Arthralgia [Fatal]
  - Delirium [Fatal]
  - Pain [Fatal]
  - Back pain [Fatal]
  - Somnolence [Fatal]
  - Off label use [Fatal]
  - Prescribed underdose [Unknown]

NARRATIVE: CASE EVENT DATE: 20151001
